FAERS Safety Report 5371665-5 (Version None)
Quarter: 2007Q2

REPORT INFORMATION
  Report Type: 
  Country: None (occurrence: None)
  Receive Date: 20070627
  Receipt Date: 20070620
  Transmission Date: 20071010
  Serious: Yes (Hospitalization)
  Sender: FDA-Public Use
  Company Number: PHBS2007FR10611

PATIENT
  Age: 69 Year
  Sex: Female

DRUGS (1)
  1. GLEEVEC [Suspect]
     Indication: CHRONIC MYELOID LEUKAEMIA
     Dosage: 400 MG/DAY
     Route: 065
     Dates: start: 20060619

REACTIONS (2)
  - ACUTE LYMPHOCYTIC LEUKAEMIA [None]
  - PYREXIA [None]
